FAERS Safety Report 5397064-8 (Version None)
Quarter: 2007Q3

REPORT INFORMATION
  Report Type: 
  Country: None (occurrence: None)
  Receive Date: 20070723
  Receipt Date: 20070716
  Transmission Date: 20080115
  Serious: Yes (Other)
  Sender: FDA-Public Use
  Company Number: 2007SP014459

PATIENT
  Sex: Female

DRUGS (1)
  1. MIRALAX [Suspect]
     Indication: CONSTIPATION
     Dosage: 1 DF; QD; PO
     Route: 048
     Dates: start: 20070101

REACTIONS (4)
  - CONDITION AGGRAVATED [None]
  - CONSTIPATION [None]
  - DRUG INEFFECTIVE [None]
  - LARGE INTESTINE PERFORATION [None]
